FAERS Safety Report 25515718 (Version 1)
Quarter: 2025Q3

REPORT INFORMATION
  Report Type: Spontaneous
  Country: EU (occurrence: EU)
  Receive Date: 20250704
  Receipt Date: 20250704
  Transmission Date: 20251020
  Serious: Yes (Death, Other)
  Sender: SANOFI AVENTIS
  Company Number: EU-SA-2025SA173077

PATIENT
  Age: 65 Year
  Sex: Female

DRUGS (24)
  1. ZALTRAP [Suspect]
     Active Substance: ZIV-AFLIBERCEPT
     Indication: Colon cancer
     Route: 042
     Dates: start: 20240710
  2. ZALTRAP [Suspect]
     Active Substance: ZIV-AFLIBERCEPT
     Route: 042
     Dates: start: 20240724
  3. ZALTRAP [Suspect]
     Active Substance: ZIV-AFLIBERCEPT
     Route: 042
     Dates: start: 20240812
  4. ZALTRAP [Suspect]
     Active Substance: ZIV-AFLIBERCEPT
     Route: 042
     Dates: start: 20240827
  5. ZALTRAP [Suspect]
     Active Substance: ZIV-AFLIBERCEPT
     Route: 042
     Dates: start: 20240918
  6. ZALTRAP [Suspect]
     Active Substance: ZIV-AFLIBERCEPT
     Route: 042
     Dates: start: 20241002
  7. ZALTRAP [Suspect]
     Active Substance: ZIV-AFLIBERCEPT
     Route: 042
     Dates: start: 20241023
  8. ZALTRAP [Suspect]
     Active Substance: ZIV-AFLIBERCEPT
     Route: 042
     Dates: start: 20241106
  9. ZALTRAP [Suspect]
     Active Substance: ZIV-AFLIBERCEPT
     Route: 042
     Dates: start: 20241120
  10. ZALTRAP [Suspect]
     Active Substance: ZIV-AFLIBERCEPT
     Route: 042
     Dates: start: 20241211
  11. ZALTRAP [Suspect]
     Active Substance: ZIV-AFLIBERCEPT
     Route: 042
     Dates: start: 20250108
  12. ZALTRAP [Suspect]
     Active Substance: ZIV-AFLIBERCEPT
     Route: 042
     Dates: start: 20250122
  13. ZALTRAP [Suspect]
     Active Substance: ZIV-AFLIBERCEPT
     Route: 042
     Dates: start: 20250205
  14. ZALTRAP [Suspect]
     Active Substance: ZIV-AFLIBERCEPT
     Route: 042
     Dates: start: 20250219
  15. ZALTRAP [Suspect]
     Active Substance: ZIV-AFLIBERCEPT
     Route: 042
     Dates: start: 20250305
  16. ZALTRAP [Suspect]
     Active Substance: ZIV-AFLIBERCEPT
     Route: 042
     Dates: start: 20250326
  17. ZALTRAP [Suspect]
     Active Substance: ZIV-AFLIBERCEPT
     Route: 042
     Dates: start: 20250409
  18. ZALTRAP [Suspect]
     Active Substance: ZIV-AFLIBERCEPT
     Route: 042
     Dates: start: 20250423
  19. ZALTRAP [Suspect]
     Active Substance: ZIV-AFLIBERCEPT
     Route: 042
     Dates: start: 20250507
  20. ZALTRAP [Suspect]
     Active Substance: ZIV-AFLIBERCEPT
     Route: 042
     Dates: start: 20250521
  21. Levofolic [Concomitant]
     Route: 042
  22. FLUOROURACIL [Concomitant]
     Active Substance: FLUOROURACIL
     Route: 042
  23. FLUOROURACIL [Concomitant]
     Active Substance: FLUOROURACIL
     Route: 040
  24. IRINOTECAN [Concomitant]
     Active Substance: IRINOTECAN
     Route: 042

REACTIONS (2)
  - Myocardial infarction [Fatal]
  - Disease progression [Fatal]
